FAERS Safety Report 9631167 (Version 3)
Quarter: 2014Q1

REPORT INFORMATION
  Report Type: Spontaneous
  Country: DE (occurrence: None)
  Receive Date: 20131015
  Receipt Date: 20140226
  Transmission Date: 20141002
  Serious: Yes (Hospitalization, Other)
  Sender: FDA-Public Use
  Company Number: SYM-2013-11439

PATIENT
  Age: 72 Year
  Sex: Male
  Weight: 82 kg

DRUGS (7)
  1. ZYCLARA [Suspect]
     Indication: PRODUCT USED FOR UNKNOWN INDICATION
     Dosage: 1ST TREATMENT
     Route: 061
     Dates: start: 20130526, end: 20130529
  2. ARGININE [Concomitant]
  3. ASS [Concomitant]
  4. PANTOZOL (PANTOPRAZOLE SODIUM) [Concomitant]
  5. RAMIPRIL (RAMIPRIL) [Concomitant]
  6. BELOC ZOK (METOPROLOL SUCCINATE) [Concomitant]
  7. SIMVASTATIN (SIMVASTATIN) [Concomitant]

REACTIONS (10)
  - Vision blurred [None]
  - Transient ischaemic attack [None]
  - Blindness [None]
  - Headache [None]
  - Nausea [None]
  - Urinary tract infection [None]
  - Pneumonia [None]
  - Hypokalaemia [None]
  - Amaurosis fugax [None]
  - Mydriasis [None]
